FAERS Safety Report 23977948 (Version 1)
Quarter: 2024Q2

REPORT INFORMATION
  Report Type: Spontaneous
  Country: US (occurrence: US)
  Receive Date: 20240614
  Receipt Date: 20240614
  Transmission Date: 20240716
  Serious: No
  Sender: FDA-Public Use
  Company Number: US-UROGEN PHARMA LTD.-2024-UGN-000055

PATIENT

DRUGS (3)
  1. JELMYTO [Suspect]
     Active Substance: MITOMYCIN
     Indication: Transitional cell cancer of the renal pelvis and ureter
     Dosage: UNK, ONCE A WEEK (INSTILLATION)
     Dates: start: 20240409, end: 20240409
  2. JELMYTO [Suspect]
     Active Substance: MITOMYCIN
     Dosage: UNK, ONCE A WEEK (INSTILLATION)
     Dates: start: 20240416, end: 20240416
  3. JELMYTO [Suspect]
     Active Substance: MITOMYCIN
     Dosage: UNK, ONCE A WEEK (INSTILLATION)
     Dates: start: 20240423, end: 20240423

REACTIONS (9)
  - Nausea [Unknown]
  - Nausea [Unknown]
  - Nausea [Unknown]
  - Vomiting [Unknown]
  - Vomiting [Unknown]
  - Vomiting [Unknown]
  - Asthenia [Unknown]
  - Asthenia [Unknown]
  - Asthenia [Unknown]

NARRATIVE: CASE EVENT DATE: 20240409
